FAERS Safety Report 15631334 (Version 1)
Quarter: 2018Q4

REPORT INFORMATION
  Report Type: Spontaneous
  Country: PL (occurrence: PL)
  Receive Date: 20181119
  Receipt Date: 20181119
  Transmission Date: 20190205
  Serious: Yes (Other)
  Sender: FDA-Public Use
  Company Number: PL-TEVA-2018-PL-974847

PATIENT
  Sex: Female

DRUGS (2)
  1. CORTARE [Suspect]
     Active Substance: BECLOMETHASONE DIPROPIONATE
     Dosage: 350 MILLIGRAM DAILY; DOSE: 250 MG AT THE MORNING AND 100 MG AT THE EVENING
     Route: 065
     Dates: start: 20180122, end: 201807
  2. CORTARE [Suspect]
     Active Substance: BECLOMETHASONE DIPROPIONATE
     Indication: PRODUCTIVE COUGH
     Dosage: 500 MILLIGRAM DAILY;
     Route: 065
     Dates: start: 20171113, end: 20180121

REACTIONS (6)
  - Generalised erythema [Not Recovered/Not Resolved]
  - Face oedema [Not Recovered/Not Resolved]
  - Oedema peripheral [Not Recovered/Not Resolved]
  - Alopecia [Not Recovered/Not Resolved]
  - Fungal infection [Recovering/Resolving]
  - Pruritus [Recovering/Resolving]

NARRATIVE: CASE EVENT DATE: 201808
